FAERS Safety Report 7155845-4 (Version None)
Quarter: 2010Q4

REPORT INFORMATION
  Report Type: 
  Country: None (occurrence: None)
  Receive Date: 20101123
  Receipt Date: 20101006
  Transmission Date: 20110411
  Serious: No
  Sender: FDA-Public Use
  Company Number: 010976

PATIENT
  Sex: Female

DRUGS (3)
  1. CIMZIA [Suspect]
     Indication: CROHN'S DISEASE
     Dosage: 400 MG 1X/4 WEEKS  SUBCUTANEOUS
     Route: 058
     Dates: start: 20090106
  2. CIMZIA [Suspect]
     Dosage: 400 MG 1X/4 WEEKS SUBCUTANEOUS
     Route: 058
     Dates: start: 20100724
  3. CIMZIA [Suspect]
     Dosage: 400 MG 1X/28 DAYS SUBCUTANEOUS
     Route: 058
     Dates: start: 20100919

REACTIONS (2)
  - DRUG INEFFECTIVE [None]
  - INJECTION SITE PAIN [None]
